FAERS Safety Report 14585006 (Version 1)
Quarter: 2018Q1

REPORT INFORMATION
  Report Type: Spontaneous
  Country: FR (occurrence: FR)
  Receive Date: 20180301
  Receipt Date: 20180301
  Transmission Date: 20180509
  Serious: Yes (Other)
  Sender: FDA-Public Use
  Company Number: FR-MERCK KGAA-2042788

PATIENT
  Age: 58 Year
  Sex: Female

DRUGS (13)
  1. METFORMINE [Concomitant]
     Active Substance: METFORMIN HYDROCHLORIDE
  2. PROPANOLOL [Concomitant]
     Active Substance: PROPRANOLOL HYDROCHLORIDE
  3. PANTOPRAZOLE 40 [Concomitant]
     Active Substance: PANTOPRAZOLE SODIUM
  4. CYMBALTA [Concomitant]
     Active Substance: DULOXETINE HYDROCHLORIDE
  5. COVERSYL [Concomitant]
     Active Substance: PERINDOPRIL
     Dates: start: 2017
  6. EUTHYROX [Concomitant]
     Active Substance: LEVOTHYROXINE SODIUM
  7. LAMALINE [Concomitant]
     Active Substance: ACETAMINOPHEN\CAFFEINE\OPIUM
  8. SPASFON LYOC [Concomitant]
     Active Substance: PHLOROGLUCINOL
  9. NOVOTHYROX [Suspect]
     Active Substance: LEVOTHYROXINE SODIUM
     Dates: start: 2017
  10. TRANXENE [Concomitant]
     Active Substance: CLORAZEPATE DIPOTASSIUM
  11. NOVOTHYROX [Suspect]
     Active Substance: LEVOTHYROXINE SODIUM
     Indication: HYPOTHYROIDISM
     Dates: start: 201703
  12. NOVOTHYROX [Suspect]
     Active Substance: LEVOTHYROXINE SODIUM
     Dates: start: 2017
  13. DOLIPRANE [Concomitant]
     Active Substance: ACETAMINOPHEN

REACTIONS (18)
  - Diabetes mellitus inadequate control [None]
  - Asthenia [None]
  - Hyperhidrosis [None]
  - Haematochezia [None]
  - Fatigue [Recovering/Resolving]
  - Feeling abnormal [None]
  - Diarrhoea [Recovering/Resolving]
  - Headache [None]
  - Adverse event [Not Recovered/Not Resolved]
  - Alopecia [Recovering/Resolving]
  - Blood thyroid stimulating hormone increased [None]
  - Gastrointestinal disorder [None]
  - Intestinal varices [None]
  - Feeling of body temperature change [None]
  - Weight increased [Recovering/Resolving]
  - Vomiting [Recovering/Resolving]
  - Colitis [None]
  - Dyspnoea exertional [None]

NARRATIVE: CASE EVENT DATE: 2017
